FAERS Safety Report 7618695-8 (Version None)
Quarter: 2011Q3

REPORT INFORMATION
  Report Type: 
  Country: None (occurrence: None)
  Receive Date: 20110718
  Receipt Date: 20110708
  Transmission Date: 20111222
  Serious: Yes (Hospitalization)
  Sender: FDA-Public Use
  Company Number: US-ABBOTT-11P-163-0837982-00

PATIENT
  Sex: Female

DRUGS (3)
  1. HUMIRA [Suspect]
     Indication: RHEUMATOID ARTHRITIS
     Dates: start: 20110601, end: 20110601
  2. HUMIRA [Suspect]
     Dates: start: 20110601
  3. HUMIRA [Suspect]
     Dates: start: 20110601, end: 20110601

REACTIONS (9)
  - INTENTIONAL OVERDOSE [None]
  - ARTHRALGIA [None]
  - FEELING COLD [None]
  - VOMITING [None]
  - NAUSEA [None]
  - CONFUSIONAL STATE [None]
  - DIARRHOEA [None]
  - DEPRESSION [None]
  - URINARY TRACT INFECTION [None]
